FAERS Safety Report 7031386-X (Version None)
Quarter: 2010Q4

REPORT INFORMATION
  Report Type: 
  Country: None (occurrence: None)
  Receive Date: 20101006
  Receipt Date: 20100929
  Transmission Date: 20110411
  Serious: Yes (Other)
  Sender: FDA-Public Use
  Company Number: US-AMGEN-KDL435716

PATIENT
  Sex: Female
  Weight: 63.6 kg

DRUGS (4)
  1. ENBREL [Suspect]
     Indication: PSORIASIS
     Route: 058
     Dates: start: 20100414
  2. FLUOCINONIDE [Concomitant]
     Route: 061
     Dates: start: 20090312
  3. CALCITRIOL [Concomitant]
     Route: 061
     Dates: start: 20090312
  4. UNSPECIFIED TOPICAL PRODUCT [Concomitant]
     Route: 061
     Dates: start: 20010101

REACTIONS (3)
  - DIPLOPIA [None]
  - EYE IRRITATION [None]
  - LACRIMATION INCREASED [None]
